FAERS Safety Report 9230240 (Version 3)
Quarter: 2013Q3

REPORT INFORMATION
  Report Type: Report from Study
  Country: HU (occurrence: HU)
  Receive Date: 20130415
  Receipt Date: 20130826
  Transmission Date: 20140515
  Serious: Yes (Hospitalization)
  Sender: FDA-Public Use
  Company Number: PHHO2013HU004804

PATIENT
  Age: 64 Year
  Sex: Male
  Weight: 67 kg

DRUGS (8)
  1. BLINDED AFINITOR [Suspect]
     Indication: NEUROENDOCRINE TUMOUR
     Dosage: CODE NOT BROKEN
     Route: 048
     Dates: start: 20130320, end: 20130403
  2. BLINDED NO TREATMENT RECEIVED [Suspect]
     Indication: NEUROENDOCRINE TUMOUR
     Dosage: CODE NOT BROKEN
     Route: 048
     Dates: start: 20130320, end: 20130403
  3. BLINDED PLACEBO [Suspect]
     Indication: NEUROENDOCRINE TUMOUR
     Dosage: CODE NOT BROKEN
     Route: 048
     Dates: start: 20130320, end: 20130403
  4. BLINDED AFINITOR [Suspect]
     Dosage: CODE NOT BROKEN
     Route: 048
     Dates: start: 20130409, end: 20130425
  5. BLINDED NO TREATMENT RECEIVED [Suspect]
     Dosage: CODE NOT BROKEN
     Route: 048
     Dates: start: 20130409, end: 20130425
  6. BLINDED PLACEBO [Suspect]
     Dosage: CODE NOT BROKEN
     Route: 048
     Dates: start: 20130409, end: 20130425
  7. ZOMETA [Suspect]
     Indication: METASTATIC NEOPLASM
     Dosage: 4 MG, UNK
     Route: 042
     Dates: start: 20130320
  8. FENTANYL [Concomitant]
     Indication: PAIN
     Dosage: 25 UG/HR, UNK
     Dates: start: 20130410

REACTIONS (2)
  - Toxic skin eruption [Recovered/Resolved]
  - Pyrexia [Unknown]
